FAERS Safety Report 25396010 (Version 1)
Quarter: 2025Q2

REPORT INFORMATION
  Report Type: Spontaneous
  Country: CA (occurrence: CA)
  Receive Date: 20250604
  Receipt Date: 20250604
  Transmission Date: 20250716
  Serious: Yes (Death)
  Sender: CHEPLAPHARM
  Company Number: CA-CHEPLA-2025006808

PATIENT
  Age: 48 Year
  Sex: Male

DRUGS (16)
  1. CAPECITABINE [Suspect]
     Active Substance: CAPECITABINE
     Indication: Central nervous system lesion
  2. PACLITAXEL [Suspect]
     Active Substance: PACLITAXEL
  3. FLUOROURACIL [Suspect]
     Active Substance: FLUOROURACIL
     Indication: Central nervous system lesion
  4. CEMIPLIMAB [Suspect]
     Active Substance: CEMIPLIMAB
     Indication: Immunosuppression
  5. CARBOPLATIN [Suspect]
     Active Substance: CARBOPLATIN
  6. TACROLIMUS [Suspect]
     Active Substance: TACROLIMUS
     Indication: Immunosuppression
  7. TACROLIMUS [Suspect]
     Active Substance: TACROLIMUS
     Indication: Immunosuppression
  8. MYCOPHENOLIC ACID [Suspect]
     Active Substance: MYCOPHENOLIC ACID
     Indication: Immunosuppression
  9. MYCOPHENOLIC ACID [Suspect]
     Active Substance: MYCOPHENOLIC ACID
     Indication: Immunosuppression
  10. PREDNISONE [Suspect]
     Active Substance: PREDNISONE
     Indication: Immunosuppression
     Dosage: TRIPLE IMMUNOSUPPRESSION?DAILY DOSE: 5 MILLIGRAM
  11. PREDNISONE [Suspect]
     Active Substance: PREDNISONE
     Indication: Immunosuppression
  12. PREDNISONE [Suspect]
     Active Substance: PREDNISONE
     Indication: Immunosuppression
     Dosage: DAILY DOSE: 10 MILLIGRAM
  13. SIROLIMUS [Suspect]
     Active Substance: SIROLIMUS
     Indication: Immunosuppression
  14. DEXAMETHASONE [Suspect]
     Active Substance: DEXAMETHASONE
     Indication: Immunosuppression
  15. DEXAMETHASONE [Suspect]
     Active Substance: DEXAMETHASONE
     Indication: Immunosuppression
     Dosage: TRANSITIONED?DAILY DOSE: 4 MILLIGRAM
  16. CETUXIMAB [Suspect]
     Active Substance: CETUXIMAB

REACTIONS (2)
  - Haemorrhagic stroke [Fatal]
  - Off label use [Recovered/Resolved]
